FAERS Safety Report 21620514 (Version 3)
Quarter: 2023Q1

REPORT INFORMATION
  Report Type: Spontaneous
  Country: AU (occurrence: None)
  Receive Date: 20221121
  Receipt Date: 20230219
  Transmission Date: 20230418
  Serious: Yes (Other)
  Sender: FDA-Public Use
  Company Number: AU-ROCHE-3206010

PATIENT
  Age: 26 Year
  Sex: Male

DRUGS (2)
  1. OCREVUS [Suspect]
     Active Substance: OCRELIZUMAB
     Indication: Relapsing-remitting multiple sclerosis
     Route: 065
     Dates: start: 20220922
  2. OCREVUS [Suspect]
     Active Substance: OCRELIZUMAB
     Dosage: 10/OCT/2022 SECOND DOSE,
     Route: 042
     Dates: start: 20221010

REACTIONS (5)
  - Jaundice [Recovering/Resolving]
  - Tachycardia [Unknown]
  - Abdominal pain upper [Recovered/Resolved]
  - Hepatitis [Recovered/Resolved]
  - Epstein-Barr virus infection [Unknown]

NARRATIVE: CASE EVENT DATE: 20221010
